FAERS Safety Report 17267313 (Version 1)
Quarter: 2019Q4

REPORT INFORMATION
  Report Type: Spontaneous
  Country: US (occurrence: US)
  Receive Date: 20191220
  Receipt Date: 20191220
  Transmission Date: 20200122
  Serious: Yes (Hospitalization)
  Sender: FDA-Public Use
  Company Number: None

PATIENT
  Age: 42 Year
  Sex: Female
  Weight: 58.8 kg

DRUGS (1)
  1. DRUG NOT SPECIFIED [Suspect]
     Active Substance: UNSPECIFIED INGREDIENT

REACTIONS (8)
  - Pericarditis malignant [None]
  - Obstructive airways disorder [None]
  - Cytokine release syndrome [None]
  - Transaminases increased [None]
  - Pleural effusion [None]
  - Disease progression [None]
  - Lymphocyte adoptive therapy [None]
  - Pericardial effusion [None]

NARRATIVE: CASE EVENT DATE: 20190611
